FAERS Safety Report 17091796 (Version 2)
Quarter: 2020Q2

REPORT INFORMATION
  Report Type: Report from Study
  Country: GB (occurrence: GB)
  Receive Date: 20191129
  Receipt Date: 20200522
  Transmission Date: 20200713
  Serious: Yes (Other)
  Sender: FDA-Public Use
  Company Number: GB-UCBSA-2019039849

PATIENT
  Sex: Male

DRUGS (1)
  1. BRIVARACETAM [Suspect]
     Active Substance: BRIVARACETAM
     Indication: PRODUCT USED FOR UNKNOWN INDICATION
     Dosage: UNK
     Dates: end: 20170429

REACTIONS (2)
  - Seizure [Unknown]
  - Drug ineffective [Unknown]
